FAERS Safety Report 14185648 (Version 1)
Quarter: 2017Q4

REPORT INFORMATION
  Report Type: Spontaneous
  Country: US (occurrence: US)
  Receive Date: 20171112
  Receipt Date: 20171112
  Transmission Date: 20180321
  Serious: Yes (Hospitalization)
  Sender: FDA-Public Use
  Company Number: None

PATIENT
  Age: 53 Year

DRUGS (1)
  1. BACTRIM [Suspect]
     Active Substance: SULFAMETHOXAZOLE\TRIMETHOPRIM
     Indication: ABSCESS LIMB
     Route: 048
     Dates: start: 20171105, end: 20171111

REACTIONS (2)
  - Urticaria [None]
  - Dyspnoea [None]

NARRATIVE: CASE EVENT DATE: 20171111
